FAERS Safety Report 8288370-8 (Version None)
Quarter: 2012Q2

REPORT INFORMATION
  Report Type: 
  Country: None (occurrence: None)
  Receive Date: 20120416
  Receipt Date: 20120410
  Transmission Date: 20120825
  Serious: Yes (Other)
  Sender: FDA-Public Use
  Company Number: US-FRI-1000029740

PATIENT
  Sex: Male

DRUGS (1)
  1. DALIRESP [Suspect]

REACTIONS (1)
  - ANAPHYLACTIC REACTION [None]
